FAERS Safety Report 6429484-4 (Version None)
Quarter: 2009Q4

REPORT INFORMATION
  Report Type: 
  Country: None (occurrence: None)
  Receive Date: 20091105
  Receipt Date: 20090706
  Transmission Date: 20100525
  Serious: Yes (Hospitalization)
  Sender: FDA-Public Use
  Company Number: US-ABBOTT-09P-163-0583474-00

PATIENT
  Sex: Female
  Weight: 113.5 kg

DRUGS (2)
  1. KALETRA [Suspect]
     Indication: HIV INFECTION
     Dosage: 200MG/50MG
     Route: 048
     Dates: start: 20070101
  2. ISENTRESS [Concomitant]
     Indication: HIV INFECTION
     Route: 048

REACTIONS (12)
  - EYELID MARGIN CRUSTING [None]
  - HERPES ZOSTER [None]
  - INSOMNIA [None]
  - NAUSEA [None]
  - PAIN [None]
  - RASH [None]
  - RASH MACULAR [None]
  - SKIN EXFOLIATION [None]
  - STAPHYLOCOCCAL INFECTION [None]
  - SWELLING FACE [None]
  - VISION BLURRED [None]
  - VOMITING [None]
